FAERS Safety Report 7611034-8 (Version None)
Quarter: 2011Q3

REPORT INFORMATION
  Report Type: 
  Country: None (occurrence: None)
  Receive Date: 20110715
  Receipt Date: 20110704
  Transmission Date: 20111222
  Serious: Yes (Hospitalization)
  Sender: FDA-Public Use
  Company Number: PT-JNJFOC-20101000669

PATIENT
  Age: 36 Year
  Sex: Male

DRUGS (7)
  1. CYCLOSPORINE [Concomitant]
  2. LEPICORTINOLO ST [Concomitant]
  3. LEPICORTINOLO ST [Concomitant]
  4. REMICADE [Suspect]
     Route: 042
  5. REMICADE [Suspect]
     Route: 042
     Dates: start: 20101201
  6. LEPICORTINOLO ST [Concomitant]
  7. REMICADE [Suspect]
     Indication: BEHCET'S SYNDROME
     Dosage: STARTED APPROXIMATELY 4 YEARS AGO
     Route: 042

REACTIONS (3)
  - TOOTH EXTRACTION [None]
  - CELLULITIS [None]
  - TOOTH ABSCESS [None]
